FAERS Safety Report 11026279 (Version 1)
Quarter: 2015Q2

REPORT INFORMATION
  Report Type: Spontaneous
  Country: US (occurrence: None)
  Receive Date: 20150413
  Receipt Date: 20150413
  Transmission Date: 20150821
  Serious: Yes (Life-Threatening, Hospitalization, Disabling, Other)
  Sender: FDA-Public Use
  Company Number: None

PATIENT
  Age: 48 Year
  Sex: Male
  Weight: 81.65 kg

DRUGS (5)
  1. FISH OIL [Concomitant]
     Active Substance: FISH OIL
  2. XARELTO [Suspect]
     Active Substance: RIVAROXABAN
     Indication: THROMBOSIS PROPHYLAXIS
     Dosage: TAKEN BY MOUTH
     Route: 048
     Dates: start: 20150116, end: 20150201
  3. VITAMIN C [Concomitant]
     Active Substance: ASCORBIC ACID
  4. MULTIVITAMIN [Concomitant]
     Active Substance: VITAMINS
  5. CALCIUM [Concomitant]
     Active Substance: CALCIUM

REACTIONS (1)
  - Cardiac tamponade [None]

NARRATIVE: CASE EVENT DATE: 20150201
